FAERS Safety Report 4464056-2 (Version None)
Quarter: 2004Q4

REPORT INFORMATION
  Report Type: 
  Country: None (occurrence: None)
  Receive Date: 20041001
  Receipt Date: 20040920
  Transmission Date: 20050328
  Serious: Yes (Death, Hospitalization)
  Sender: FDA-Public Use
  Company Number: DE-JNJFOC-20040906297

PATIENT
  Sex: Female

DRUGS (1)
  1. RISPERDAL [Suspect]
     Route: 049

REACTIONS (2)
  - CIRCULATORY COLLAPSE [None]
  - GRAND MAL CONVULSION [None]
